FAERS Safety Report 7438488-4 (Version None)
Quarter: 2011Q2

REPORT INFORMATION
  Report Type: 
  Country: None (occurrence: None)
  Receive Date: 20110426
  Receipt Date: 20110420
  Transmission Date: 20111010
  Serious: Yes (Other)
  Sender: FDA-Public Use
  Company Number: DE-PFIZER INC-2011086061

PATIENT
  Age: 58 Year
  Sex: Male

DRUGS (5)
  1. SORTIS [Suspect]
     Dosage: 20 MG, 1X/DAY
     Route: 048
     Dates: start: 20110301
  2. CRESTOR [Concomitant]
     Dosage: UNK
  3. CLOPIDOGREL [Concomitant]
     Dosage: UNK
  4. SORTIS [Suspect]
     Dosage: UNK
     Dates: start: 19980101, end: 20090101
  5. EZETIMIBE/SIMVASTATIN [Concomitant]
     Dosage: [EZETIMIBE 10 MG / SIMVASTATIN 20 MG]

REACTIONS (3)
  - PULSE ABNORMAL [None]
  - AORTIC OCCLUSION [None]
  - PAIN IN EXTREMITY [None]
